FAERS Safety Report 8139505-9 (Version None)
Quarter: 2012Q1

REPORT INFORMATION
  Report Type: 
  Country: None (occurrence: None)
  Receive Date: 20120215
  Receipt Date: 20120202
  Transmission Date: 20120608
  Serious: Yes (Hospitalization)
  Sender: FDA-Public Use
  Company Number: DE-ELI_LILLY_AND_COMPANY-DE201202002575

PATIENT
  Age: 73 Year
  Sex: Female

DRUGS (1)
  1. HUMALOG [Suspect]
     Route: 058

REACTIONS (2)
  - NEPHROLITHIASIS [None]
  - HEADACHE [None]
